FAERS Safety Report 6705226-X (Version None)
Quarter: 2010Q2

REPORT INFORMATION
  Report Type: 
  Country: None (occurrence: None)
  Receive Date: 20100430
  Receipt Date: 20090306
  Transmission Date: 20101027
  Serious: No
  Sender: FDA-Public Use
  Company Number: US-ASTRAZENECA-2009UW06119

PATIENT
  Age: 6439 Day
  Sex: Female
  Weight: 38.1 kg

DRUGS (8)
  1. NEXIUM IV [Suspect]
     Indication: GASTROINTESTINAL MOTILITY DISORDER
     Dosage: 80 MG BOLUS
     Route: 042
     Dates: start: 20090225
  2. NEXIUM IV [Suspect]
     Indication: REFLUX OESOPHAGITIS
     Dosage: 80 MG BOLUS
     Route: 042
     Dates: start: 20090225
  3. NEXIUM IV [Suspect]
     Dosage: 0.8 MG/CC
     Route: 042
     Dates: start: 20090225, end: 20090227
  4. NEXIUM IV [Suspect]
     Dosage: 0.8 MG/CC
     Route: 042
     Dates: start: 20090225, end: 20090227
  5. NEXIUM IV [Suspect]
     Dosage: 0.8 MG/CC
     Route: 042
     Dates: start: 20090228, end: 20090303
  6. NEXIUM IV [Suspect]
     Dosage: 0.8 MG/CC
     Route: 042
     Dates: start: 20090228, end: 20090303
  7. BACLOFEN [Concomitant]
  8. VITAMINS [Concomitant]

REACTIONS (4)
  - ABDOMINAL PAIN [None]
  - CUSHINGOID [None]
  - HEADACHE [None]
  - INCORRECT DOSE ADMINISTERED [None]
